FAERS Safety Report 8695945 (Version 4)
Quarter: 2012Q4

REPORT INFORMATION
  Report Type: 
  Country: US (occurrence: US)
  Receive Date: 20120801
  Receipt Date: 20120907
  Transmission Date: 20130627
  Serious: Yes (Death, Hospitalization, Other)
  Sender: FDA-Public Use
  Company Number: US-BIOGENIDEC-2012BI027560

PATIENT
  Age: 51 Year
  Sex: Male

DRUGS (21)
  1. TYSABRI [Suspect]
     Indication: MULTIPLE SCLEROSIS
     Route: 042
     Dates: start: 20071207
  2. AMPYRA [Concomitant]
     Route: 048
     Dates: start: 20120126
  3. ASPIRIN [Concomitant]
     Route: 048
     Dates: start: 20070803
  4. CALCIUM [Concomitant]
     Dates: start: 20110927
  5. CHOLINE BITARTRATE [Concomitant]
     Dates: start: 20070803
  6. CLORAZEPATE [Concomitant]
     Route: 048
     Dates: start: 20111011
  7. CO Q-10 [Concomitant]
     Dates: start: 20111128
  8. CYMBALTA [Concomitant]
     Route: 048
     Dates: start: 20120111
  9. FINASTERIDE [Concomitant]
     Route: 048
     Dates: start: 20111128
  10. IBUPROFEN [Concomitant]
     Route: 048
     Dates: start: 20070803
  11. LISINOPRIL [Concomitant]
     Route: 048
     Dates: start: 20070803
  12. LYRICA [Concomitant]
     Route: 048
     Dates: start: 20111128
  13. OMEGA-3 [Concomitant]
     Dates: start: 20110803
  14. PENNSAID TOPICAL SOLUTION 1.5%W/W [Concomitant]
     Indication: PAIN
     Route: 061
     Dates: start: 20120320
  15. POTASSIUM MAGNESIUM ASPARTAT [Concomitant]
     Dates: start: 20070803
  16. RESVERATROL [Concomitant]
     Route: 048
     Dates: start: 20111122
  17. SELENIUM [Concomitant]
     Route: 048
     Dates: start: 20110927
  18. SYNTHROID [Concomitant]
     Route: 048
     Dates: start: 20070803
  19. ULTRAM [Concomitant]
     Route: 048
     Dates: start: 20110927
  20. VITAMIN B12 [Concomitant]
     Dates: start: 20110927
  21. VITAMIN D3 [Concomitant]
     Dates: start: 20110927

REACTIONS (4)
  - Multiple sclerosis [Fatal]
  - Rash generalised [Unknown]
  - Hepatitis [Not Recovered/Not Resolved]
  - Herpes sepsis [Not Recovered/Not Resolved]
